FAERS Safety Report 15849802 (Version 2)
Quarter: 2019Q1

REPORT INFORMATION
  Report Type: Spontaneous
  Country: US (occurrence: US)
  Receive Date: 20190121
  Receipt Date: 20190321
  Transmission Date: 20190417
  Serious: No
  Sender: FDA-Public Use
  Company Number: US-BAUSCH-BL-2019-001284

PATIENT
  Age: 68 Year
  Sex: Male
  Weight: 124.85 kg

DRUGS (5)
  1. ALAWAY [Suspect]
     Active Substance: KETOTIFEN FUMARATE
     Indication: HYPERSENSITIVITY
  2. ASPIRIN. [Concomitant]
     Active Substance: ASPIRIN
     Indication: PRODUCT USED FOR UNKNOWN INDICATION
     Route: 048
  3. ALAWAY [Suspect]
     Active Substance: KETOTIFEN FUMARATE
     Indication: EYE IRRITATION
     Dosage: 1 DROP IN EACH EYE
     Route: 047
     Dates: start: 20181228, end: 20190109
  4. CARDIZEM [Concomitant]
     Active Substance: DILTIAZEM HYDROCHLORIDE
     Indication: PRODUCT USED FOR UNKNOWN INDICATION
     Route: 048
  5. AMLODIPINE [Concomitant]
     Active Substance: AMLODIPINE BESYLATE
     Indication: PRODUCT USED FOR UNKNOWN INDICATION
     Route: 048

REACTIONS (1)
  - Drug ineffective [Unknown]

NARRATIVE: CASE EVENT DATE: 20181228
